FAERS Safety Report 19912776 (Version 2)
Quarter: 2021Q4

REPORT INFORMATION
  Report Type: Report from Study
  Country: BR (occurrence: BR)
  Receive Date: 20211004
  Receipt Date: 20211006
  Transmission Date: 20220303
  Serious: Yes (Other)
  Sender: FDA-Public Use
  Company Number: NVSC2021BR146731

PATIENT
  Age: 49 Year
  Sex: Female

DRUGS (3)
  1. PIQRAY [Suspect]
     Active Substance: ALPELISIB
     Indication: Breast cancer
     Dosage: 300 MG, BID
     Route: 048
     Dates: start: 20210611
  2. FASLODEX [Concomitant]
     Active Substance: FULVESTRANT
     Indication: Breast cancer
     Dosage: 500 MG (EVERY 14 DAYS, 3 DOSES: 11 AND 25 JUN 2021AND 09 JUL 2021)
     Route: 030
     Dates: start: 20210611, end: 202108
  3. FASLODEX [Concomitant]
     Active Substance: FULVESTRANT
     Dosage: 500 MG, QMO (MONTHLY)
     Route: 030
     Dates: start: 20210808

REACTIONS (16)
  - Dry skin [Unknown]
  - Burn oral cavity [Not Recovered/Not Resolved]
  - Weight decreased [Recovered/Resolved]
  - Blood pressure increased [Recovered/Resolved]
  - Diarrhoea [Not Recovered/Not Resolved]
  - Blood pressure increased [Recovered/Resolved]
  - Blood glucose increased [Recovered/Resolved]
  - Blood glucose increased [Unknown]
  - Nervousness [Unknown]
  - Dizziness [Unknown]
  - Head discomfort [Unknown]
  - Skin exfoliation [Recovering/Resolving]
  - Blood glucose abnormal [Unknown]
  - Alopecia [Recovered/Resolved]
  - Vaginal discharge [Recovered/Resolved]
  - Carbohydrate antigen 15-3 [Not Recovered/Not Resolved]

NARRATIVE: CASE EVENT DATE: 20210601
